FAERS Safety Report 6485045-2 (Version None)
Quarter: 2009Q4

REPORT INFORMATION
  Report Type: 
  Country: None (occurrence: None)
  Receive Date: 20091209
  Receipt Date: 20090903
  Transmission Date: 20100525
  Serious: No
  Sender: FDA-Public Use
  Company Number: US-AMGEN-KDL351205

PATIENT
  Sex: Female

DRUGS (3)
  1. ENBREL [Suspect]
     Indication: RHEUMATOID ARTHRITIS
     Route: 058
     Dates: start: 20090507, end: 20090723
  2. METHOTREXATE [Concomitant]
     Route: 048
  3. UNSPECIFIED MEDICATION [Concomitant]

REACTIONS (4)
  - BUTTERFLY RASH [None]
  - DRY SKIN [None]
  - RASH [None]
  - RHEUMATOID ARTHRITIS [None]
